FAERS Safety Report 6747804-8 (Version None)
Quarter: 2010Q2

REPORT INFORMATION
  Report Type: 
  Country: None (occurrence: None)
  Receive Date: 20100528
  Receipt Date: 20100519
  Transmission Date: 20101027
  Serious: Yes (Other)
  Sender: FDA-Public Use
  Company Number: JP-PFIZER INC-2010060851

PATIENT
  Age: 40 Year
  Sex: Male

DRUGS (2)
  1. CORTRIL [Suspect]
     Dosage: 10 MG/DAY
  2. THYRADIN S [Concomitant]
     Dosage: 50 MCG/DAY

REACTIONS (1)
  - IMPAIRED HEALING [None]
